FAERS Safety Report 8974503 (Version 3)
Quarter: 2013Q2

REPORT INFORMATION
  Report Type: Spontaneous
  Country: FR (occurrence: FR)
  Receive Date: 20121219
  Receipt Date: 20130523
  Transmission Date: 20140414
  Serious: Yes (Hospitalization, Other)
  Sender: FDA-Public Use
  Company Number: FR-009507513-1212FRA003935

PATIENT
  Age: 41 Year
  Sex: Male

DRUGS (6)
  1. VICTRELIS [Suspect]
     Indication: CHRONIC HEPATITIS C
     Dosage: UNK
     Route: 048
     Dates: start: 20121006
  2. VIRAFERONPEG [Suspect]
     Indication: CHRONIC HEPATITIS C
     Dosage: UNK
     Route: 058
     Dates: start: 20120908
  3. REBETOL [Suspect]
     Indication: CHRONIC HEPATITIS C
     Dosage: UNK
     Route: 048
     Dates: start: 20120908
  4. ARANESP (DARBEPOETIN ALFA) [Suspect]
     Indication: ANAEMIA
     Dosage: UNK
     Route: 058
     Dates: start: 20121006, end: 201211
  5. MONOALGIC [Concomitant]
     Indication: PAIN
     Route: 048
  6. IMOVANE [Concomitant]
     Indication: INSOMNIA
     Route: 048

REACTIONS (1)
  - Pulmonary embolism [Recovered/Resolved]
